FAERS Safety Report 20223418 (Version 1)
Quarter: 2021Q4

REPORT INFORMATION
  Report Type: Spontaneous
  Country: US (occurrence: US)
  Receive Date: 20211223
  Receipt Date: 20211223
  Transmission Date: 20220303
  Serious: Yes (Other)
  Sender: FDA-Public Use
  Company Number: US-GLAXOSMITHKLINE-US2021GSK262042

PATIENT
  Sex: Male

DRUGS (6)
  1. RANITIDINE [Suspect]
     Active Substance: RANITIDINE
     Dosage: 25 MG PRESCRIPTION
     Route: 065
     Dates: start: 199001, end: 201501
  2. RANITIDINE [Suspect]
     Active Substance: RANITIDINE
     Dosage: 75 MG PRESCRIPTION
     Route: 065
     Dates: start: 199001, end: 201501
  3. RANITIDINE [Suspect]
     Active Substance: RANITIDINE
     Dosage: 150 MG, QD
     Route: 065
     Dates: start: 199001, end: 201501
  4. RANITIDINE [Suspect]
     Active Substance: RANITIDINE
     Dosage: 25 MG PRESCRIPTION
     Route: 065
     Dates: start: 199001, end: 201501
  5. RANITIDINE [Suspect]
     Active Substance: RANITIDINE
     Dosage: 75 MG PRESCRIPTION
     Route: 065
     Dates: start: 199001, end: 201501
  6. RANITIDINE [Suspect]
     Active Substance: RANITIDINE
     Dosage: 150 MG, QD
     Route: 065
     Dates: start: 199001, end: 201501

REACTIONS (2)
  - Gastrointestinal carcinoma [Unknown]
  - Gastric cancer [Unknown]
